FAERS Safety Report 7286673-7 (Version None)
Quarter: 2011Q1

REPORT INFORMATION
  Report Type: 
  Country: None (occurrence: None)
  Receive Date: 20110210
  Receipt Date: 20110201
  Transmission Date: 20110831
  Serious: Yes (Hospitalization, Other)
  Sender: FDA-Public Use
  Company Number: BR-ASTRAZENECA-2011SE05675

PATIENT
  Age: 76 Year
  Sex: Female
  Weight: 57 kg

DRUGS (4)
  1. ABLOK PLUS [Concomitant]
     Indication: HYPERTENSION
     Route: 048
     Dates: start: 20050101
  2. NOLVADEX [Suspect]
     Indication: BREAST CANCER
     Route: 048
     Dates: start: 20100801, end: 20101101
  3. CRESTOR [Suspect]
     Indication: HYPERCHOLESTEROLAEMIA
     Route: 048
     Dates: start: 20060101
  4. NOLVADEX [Suspect]
     Route: 048
     Dates: start: 20101101

REACTIONS (2)
  - BREAST CANCER [None]
  - HEADACHE [None]
